FAERS Safety Report 20410294 (Version 1)
Quarter: 2022Q1

REPORT INFORMATION
  Report Type: Spontaneous
  Country: US (occurrence: US)
  Receive Date: 20220201
  Receipt Date: 20220201
  Transmission Date: 20220423
  Serious: No
  Sender: FDA-Public Use
  Company Number: US-BEH-2022141267

PATIENT
  Sex: Female

DRUGS (3)
  1. HIZENTRA [Suspect]
     Active Substance: HUMAN IMMUNOGLOBULIN G
     Dosage: UNK
     Route: 065
     Dates: start: 2011
  2. POLYSORBATE 80 [Suspect]
     Active Substance: POLYSORBATE 80
     Route: 065
  3. PROLINE [Suspect]
     Active Substance: PROLINE
     Route: 065

REACTIONS (2)
  - Arthritis [Unknown]
  - Erythema [Unknown]
